FAERS Safety Report 4340136-7 (Version None)
Quarter: 2004Q2

REPORT INFORMATION
  Report Type: 
  Country: None (occurrence: None)
  Receive Date: 20040416
  Receipt Date: 20040416
  Transmission Date: 20050107
  Serious: Yes (Disabling)
  Sender: FDA-Public Use
  Company Number: None

PATIENT
  Age: 37 Year
  Sex: Female
  Weight: 58.9676 kg

DRUGS (2)
  1. GENTAMICIN [Suspect]
     Indication: INFECTION
     Dosage: 4/MLPE OF PD R60001 FLUI
     Dates: start: 20030310, end: 20030319
  2. GENTAMICIN [Suspect]
     Indication: INFECTION
     Dosage: 4/MLPE OF PD R60001 FLUI
     Dates: start: 20030421, end: 20030430

REACTIONS (2)
  - OTOTOXICITY [None]
  - VESTIBULAR DISORDER [None]
